FAERS Safety Report 13005844 (Version 2)
Quarter: 2016Q4

REPORT INFORMATION
  Report Type: Spontaneous
  Country: US (occurrence: US)
  Receive Date: 20161207
  Receipt Date: 20161216
  Transmission Date: 20170207
  Serious: Yes (Other)
  Sender: FDA-Public Use
  Company Number: US-PFIZER INC-2016018431

PATIENT
  Age: 50 Year
  Sex: Male
  Weight: 128 kg

DRUGS (5)
  1. ENBREL [Suspect]
     Active Substance: ETANERCEPT
     Dosage: 50 MG, UNK
     Route: 058
  2. METHOTREXATE SODIUM. [Suspect]
     Active Substance: METHOTREXATE SODIUM
     Dosage: UNK
  3. HUMIRA [Suspect]
     Active Substance: ADALIMUMAB
     Dosage: UNK
     Route: 058
  4. COSENTYX [Suspect]
     Active Substance: SECUKINUMAB
     Indication: PSORIATIC ARTHROPATHY
     Dosage: UNK, QMO
     Dates: end: 20160104
  5. COSENTYX [Suspect]
     Active Substance: SECUKINUMAB
     Indication: PSORIASIS
     Dosage: 50 MG, UNK
     Dates: start: 20151001

REACTIONS (11)
  - Skin exfoliation [Unknown]
  - Fatigue [Unknown]
  - Condition aggravated [Unknown]
  - Asthenia [Unknown]
  - Drug ineffective [Unknown]
  - Anaemia [Unknown]
  - Hangover [Unknown]
  - Psoriatic arthropathy [Unknown]
  - Psoriasis [Unknown]
  - T-lymphocyte count decreased [Unknown]
  - Joint stiffness [Unknown]
